FAERS Safety Report 21038381 (Version 1)
Quarter: 2022Q3

REPORT INFORMATION
  Report Type: Spontaneous
  Country: CN (occurrence: CN)
  Receive Date: 20220704
  Receipt Date: 20220704
  Transmission Date: 20221026
  Serious: Yes (Other)
  Sender: FDA-Public Use
  Company Number: None

PATIENT
  Age: 51 Year
  Sex: Female
  Weight: 60 kg

DRUGS (12)
  1. CYCLOPHOSPHAMIDE [Suspect]
     Active Substance: CYCLOPHOSPHAMIDE
     Indication: Breast cancer female
     Dosage: UNK, QD, 1-2 CYCLES, CYCLOPHOSPHAMIDE + 0.9% SODIUM CHLORIDE
     Route: 041
  2. CYCLOPHOSPHAMIDE [Suspect]
     Active Substance: CYCLOPHOSPHAMIDE
     Dosage: 900 MG, QD, CYCLOPHOSPHAMIDE 900 MG + 0.9% SODIUM CHLORIDE 100ML, THIRD CYCLE
     Route: 041
     Dates: start: 20220530, end: 20220530
  3. CYCLOPHOSPHAMIDE [Suspect]
     Active Substance: CYCLOPHOSPHAMIDE
     Dosage: UNK, QD, CYCLOPHOSPHAMIDE + 0.9% SODIUM CHLORIDE,DOSE RE-INTRODUCED
     Route: 041
  4. SODIUM CHLORIDE [Suspect]
     Active Substance: SODIUM CHLORIDE
     Indication: Medication dilution
     Dosage: UNK, QD, 1-2 CYCLES, CYCLOPHOSPHAMIDE + 0.9% SODIUM CHLORIDE
     Route: 041
  5. SODIUM CHLORIDE [Suspect]
     Active Substance: SODIUM CHLORIDE
     Dosage: UNK, QD, 1-2 CYCLES, EPIRUBICIN HYDROCHLORIDE + 0.9% SODIUM CHLORIDE
     Route: 041
  6. SODIUM CHLORIDE [Suspect]
     Active Substance: SODIUM CHLORIDE
     Dosage: 100 ML, QD, CYCLOPHOSPHAMIDE (900MG) + 0.9% SODIUM CHLORIDE (100ML), THIRD CYCLE
     Route: 041
     Dates: start: 20220530, end: 20220530
  7. SODIUM CHLORIDE [Suspect]
     Active Substance: SODIUM CHLORIDE
     Dosage: 500 ML, QD, EPIRUBICIN HYDROCHLORIDE (150MG) + 0.9% SODIUM CHLORIDE (500ML), THIRD CYCLE
     Route: 041
     Dates: start: 20220530, end: 20220530
  8. SODIUM CHLORIDE [Suspect]
     Active Substance: SODIUM CHLORIDE
     Dosage: UNK, QD, CYCLOPHOSPHAMIDE + 0.9% SODIUM CHLORIDE, DOSE RE-INTRODUCED
     Route: 041
  9. SODIUM CHLORIDE [Suspect]
     Active Substance: SODIUM CHLORIDE
     Dosage: UNK, QD, EPIRUBICIN HYDROCHLORIDE + 0.9% SODIUM CHLORIDE, DOSE RE-INTRODUCED
     Route: 041
  10. EPIRUBICIN HYDROCHLORIDE [Suspect]
     Active Substance: EPIRUBICIN HYDROCHLORIDE
     Indication: Breast cancer female
     Dosage: UNK, QD, 1-2 CYCLES, EPIRUBICIN HYDROCHLORIDE + 0.9% SODIUM CHLORIDE
     Route: 041
  11. EPIRUBICIN HYDROCHLORIDE [Suspect]
     Active Substance: EPIRUBICIN HYDROCHLORIDE
     Dosage: 150 MG, QD, EPIRUBICIN HYDROCHLORIDE 150 MG + 0.9% SODIUM CHLORIDE 500 ML, THIRD CYCLE
     Route: 041
     Dates: start: 20220530, end: 20220530
  12. EPIRUBICIN HYDROCHLORIDE [Suspect]
     Active Substance: EPIRUBICIN HYDROCHLORIDE
     Dosage: UNK, QD, EPIRUBICIN HYDROCHLORIDE + 0.9% SODIUM CHLORIDE, DOSE RE-INTRODUCED
     Route: 041

REACTIONS (1)
  - Myelosuppression [Recovering/Resolving]

NARRATIVE: CASE EVENT DATE: 20220606
